FAERS Safety Report 16555339 (Version 2)
Quarter: 2019Q3

REPORT INFORMATION
  Report Type: Spontaneous
  Country: GB (occurrence: GB)
  Receive Date: 20190710
  Receipt Date: 20190809
  Transmission Date: 20191004
  Serious: Yes (Life-Threatening, Hospitalization, Disabling)
  Sender: FDA-Public Use
  Company Number: GB-TEVA-2019-GB-1074643

PATIENT
  Age: 48 Year
  Sex: Female
  Weight: 95 kg

DRUGS (13)
  1. COCODAMOL [Suspect]
     Active Substance: ACETAMINOPHEN\CODEINE PHOSPHATE
     Indication: BACK PAIN
     Dosage: UP TO 8 A DAY AT TIMES BUT 30MG/500MG
     Route: 048
     Dates: start: 20081010, end: 20181212
  2. SALBUTAMOL [Concomitant]
     Active Substance: ALBUTEROL
     Indication: ILL-DEFINED DISORDER
     Route: 065
  3. SERETIDE [Concomitant]
     Active Substance: FLUTICASONE PROPIONATE\SALMETEROL XINAFOATE
     Indication: ILL-DEFINED DISORDER
     Route: 065
  4. MOMETASONE [Concomitant]
     Active Substance: MOMETASONE
     Indication: ILL-DEFINED DISORDER
     Route: 065
  5. CANDESARTAN. [Concomitant]
     Active Substance: CANDESARTAN
     Indication: ILL-DEFINED DISORDER
     Route: 065
  6. SYSTANE (HYPROMELLOSE 2910 (4000 MPA.S)) [Concomitant]
     Active Substance: HYPROMELLOSE 2910 (4000 MPA.S)
  7. LAXIDO [Suspect]
     Active Substance: POLYETHYLENE GLYCOL 3350\POTASSIUM CHLORIDE\SODIUM BICARBONATE\SODIUM CHLORIDE
     Indication: ILL-DEFINED DISORDER
     Dosage: BLOCKED BOWEL SO 3 TO FOUR SACHETS THEN TWO THEN STIOPPED AS KIDNEY FUNCTION AFFECTED.
     Route: 048
     Dates: start: 20180707, end: 20181212
  8. OMEPRAZOLE. [Suspect]
     Active Substance: OMEPRAZOLE
     Route: 065
  9. NASEPTIN [Concomitant]
     Active Substance: CHLORHEXIDINE HYDROCHLORIDE\NEOMYCIN SULFATE
     Route: 065
  10. CALCIPOTRIOL [Concomitant]
     Active Substance: CALCIPOTRIENE
     Route: 065
  11. LANSOPRAZOLE. [Suspect]
     Active Substance: LANSOPRAZOLE
     Dosage: 20MCG
     Route: 048
     Dates: start: 20100303, end: 20181212
  12. LYRICA [Suspect]
     Active Substance: PREGABALIN
     Indication: BACK PAIN
     Dosage: 50MG AM PLUS 100MCG PM
     Route: 048
     Dates: start: 20100302, end: 20101010
  13. THYROXINE [Concomitant]
     Active Substance: LEVOTHYROXINE
     Indication: ILL-DEFINED DISORDER
     Route: 065

REACTIONS (7)
  - Ulcer haemorrhage [Unknown]
  - Myxoedema [Recovered/Resolved with Sequelae]
  - Faecaloma [Unknown]
  - Pneumonia [Unknown]
  - Renal impairment [Recovered/Resolved with Sequelae]
  - Blood pressure decreased [Recovered/Resolved with Sequelae]
  - Intestinal obstruction [Recovered/Resolved with Sequelae]
